FAERS Safety Report 18762876 (Version 1)
Quarter: 2021Q1

REPORT INFORMATION
  Report Type: Spontaneous
  Country: US (occurrence: US)
  Receive Date: 20210120
  Receipt Date: 20210120
  Transmission Date: 20210419
  Serious: Yes (Other)
  Sender: FDA-Public Use
  Company Number: None

PATIENT
  Sex: Male
  Weight: 144.45 kg

DRUGS (22)
  1. ABIRATERONE. [Suspect]
     Active Substance: ABIRATERONE ACETATE
     Indication: PROSTATE CANCER
     Dates: start: 20191221
  2. DILTIAZEM. [Concomitant]
     Active Substance: DILTIAZEM
  3. NORCO [Concomitant]
     Active Substance: ACETAMINOPHEN\HYDROCODONE BITARTRATE
  4. XGEVA [Concomitant]
     Active Substance: DENOSUMAB
  5. ASPIRIN. [Concomitant]
     Active Substance: ASPIRIN
  6. ELIGARD [Concomitant]
     Active Substance: LEUPROLIDE ACETATE
  7. DOXAZOSIN [Concomitant]
     Active Substance: DOXAZOSIN MESYLATE
  8. MAGNESIUM [Concomitant]
     Active Substance: MAGNESIUM
  9. PRADAXA [Concomitant]
     Active Substance: DABIGATRAN ETEXILATE MESYLATE
  10. TRIAMTERENE AND HYDROCHLOROTHIAZIDE [Concomitant]
     Active Substance: HYDROCHLOROTHIAZIDE\TRIAMTERENE
  11. GABAPENTIN. [Concomitant]
     Active Substance: GABAPENTIN
  12. METOPROLOL. [Concomitant]
     Active Substance: METOPROLOL
  13. EFFEXOR [Concomitant]
     Active Substance: VENLAFAXINE HYDROCHLORIDE
  14. GLIPIZIDE. [Concomitant]
     Active Substance: GLIPIZIDE
  15. PREDNISONE. [Concomitant]
     Active Substance: PREDNISONE
  16. TIKOSYN [Concomitant]
     Active Substance: DOFETILIDE
  17. CETIRIZINE [Concomitant]
     Active Substance: CETIRIZINE HYDROCHLORIDE
  18. FUROSEMIDE. [Concomitant]
     Active Substance: FUROSEMIDE
  19. LOSARTAN. [Concomitant]
     Active Substance: LOSARTAN
  20. CALCIUM + VITAMIN D3 [Concomitant]
     Active Substance: CALCIUM\CHOLECALCIFEROL
  21. METFORMIN [Concomitant]
     Active Substance: METFORMIN HYDROCHLORIDE
  22. PRAVASTATIN. [Concomitant]
     Active Substance: PRAVASTATIN

REACTIONS (1)
  - Hospice care [None]
